FAERS Safety Report 8496573-2 (Version None)
Quarter: 2012Q3

REPORT INFORMATION
  Report Type: 
  Country: None (occurrence: None)
  Receive Date: 20120709
  Receipt Date: 20120628
  Transmission Date: 20120928
  Serious: Yes (Other)
  Sender: FDA-Public Use
  Company Number: JP-VERTEX PHARMACEUTICALS INC.-AE-2012-004975

PATIENT
  Age: 55 Year
  Sex: Male

DRUGS (13)
  1. PEGINTERFERON ALFA-2B [Concomitant]
     Indication: HEPATITIS C
     Route: 058
     Dates: start: 20120217
  2. CONFATANIN [Concomitant]
     Route: 048
     Dates: start: 20120217
  3. RIBAVIRIN [Concomitant]
     Route: 048
     Dates: start: 20120512
  4. HIRUDOID [Concomitant]
     Route: 051
     Dates: start: 20120224
  5. INCIVEK [Suspect]
     Indication: HEPATITIS C
     Route: 048
     Dates: start: 20120217, end: 20120511
  6. KERATINAMIN [Concomitant]
     Route: 061
     Dates: start: 20120309
  7. RIBAVIRIN [Concomitant]
     Route: 048
     Dates: start: 20120414, end: 20120503
  8. RIBAVIRIN [Concomitant]
     Indication: HEPATITIS C
     Route: 048
     Dates: start: 20120217, end: 20120413
  9. MYRBETRIQ [Suspect]
     Route: 048
     Dates: start: 20120221
  10. LANIRAPID [Concomitant]
     Route: 051
     Dates: start: 20120309
  11. RIBAVIRIN [Concomitant]
     Route: 048
     Dates: start: 20120504, end: 20120511
  12. CLOBETASOL PROPIONATE [Concomitant]
     Route: 061
     Dates: start: 20120224
  13. RHYTHMY [Concomitant]
     Route: 048
     Dates: start: 20120229, end: 20120302

REACTIONS (1)
  - LOSS OF CONSCIOUSNESS [None]
